FAERS Safety Report 7760812-3 (Version None)
Quarter: 2011Q3

REPORT INFORMATION
  Report Type: 
  Country: None (occurrence: None)
  Receive Date: 20110919
  Receipt Date: 20110916
  Transmission Date: 20111222
  Serious: Yes (Hospitalization, Other)
  Sender: FDA-Public Use
  Company Number: DK-ABBOTT-10P-044-0634773-00

PATIENT
  Sex: Male
  Weight: 122 kg

DRUGS (6)
  1. SIBUTRAMINE HYDROCHLORIDE MONOHYDRATE [Suspect]
     Indication: OBESITY
     Route: 048
     Dates: start: 20070907, end: 20100212
  2. SIMVASTATIN [Concomitant]
     Indication: PRODUCT USED FOR UNKNOWN INDICATION
     Dosage: 40 MG /DAY
  3. CLOPIDOGREL SANDOZ [Concomitant]
     Indication: PRODUCT USED FOR UNKNOWN INDICATION
  4. BUDENSONID SANDOZ [Concomitant]
     Indication: HYPERSENSITIVITY
  5. BUDENSONID SANDOZ [Concomitant]
     Indication: ADENOIDAL DISORDER
  6. BUDENSONID SANDOZ [Concomitant]
     Indication: SEASONAL ALLERGY

REACTIONS (11)
  - CEREBROVASCULAR ACCIDENT [None]
  - EYE PAIN [None]
  - MEMORY IMPAIRMENT [None]
  - VASOSPASM [None]
  - HYPERHIDROSIS [None]
  - DISTURBANCE IN ATTENTION [None]
  - MIOSIS [None]
  - FATIGUE [None]
  - ERYTHEMA [None]
  - INTERVERTEBRAL DISC PROTRUSION [None]
  - FACIAL PAIN [None]
